FAERS Safety Report 7879037-6 (Version None)
Quarter: 2011Q4

REPORT INFORMATION
  Report Type: 
  Country: None (occurrence: None)
  Receive Date: 20111101
  Receipt Date: 20111024
  Transmission Date: 20120403
  Serious: Yes (Disabling)
  Sender: FDA-Public Use
  Company Number: PHHY2011FR92472

PATIENT
  Sex: Female
  Weight: 45 kg

DRUGS (2)
  1. ZOLEDRONOC ACID [Suspect]
     Indication: OSTEOPOROTIC FRACTURE
     Dosage: UNK UKN, UNK
     Route: 042
     Dates: start: 20110901
  2. ESBERIVEN [Concomitant]
     Dosage: UNK UKN, UNK
     Dates: start: 20110101

REACTIONS (3)
  - MUSCLE CONTRACTURE [None]
  - MYALGIA [None]
  - ARTHRALGIA [None]
